FAERS Safety Report 20839824 (Version 2)
Quarter: 2022Q3

REPORT INFORMATION
  Report Type: Spontaneous
  Country: US (occurrence: US)
  Receive Date: 20220517
  Receipt Date: 20220902
  Transmission Date: 20221026
  Serious: Yes (Other)
  Sender: FDA-Public Use
  Company Number: US-PFIZER INC-202200644250

PATIENT
  Age: 32 Year
  Sex: Female

DRUGS (1)
  1. XELJANZ [Suspect]
     Active Substance: TOFACITINIB CITRATE
     Indication: Colitis ulcerative
     Dosage: 10 MG, 2X/DAY (TWICE DAILY)
     Route: 048
     Dates: start: 20220427

REACTIONS (8)
  - Haematochezia [Unknown]
  - Fatigue [Not Recovered/Not Resolved]
  - Condition aggravated [Unknown]
  - Frequent bowel movements [Unknown]
  - Sleep disorder [Unknown]
  - Eczema [Not Recovered/Not Resolved]
  - COVID-19 [Unknown]
  - Illness [Unknown]

NARRATIVE: CASE EVENT DATE: 20220101
